FAERS Safety Report 10375844 (Version 2)
Quarter: 2014Q4

REPORT INFORMATION
  Report Type: Spontaneous
  Country: GB (occurrence: GB)
  Receive Date: 20140811
  Receipt Date: 20141003
  Transmission Date: 20150528
  Serious: Yes (Other)
  Sender: FDA-Public Use
  Company Number: GB-BAXTER-2014BAX047057

PATIENT
  Sex: Female
  Weight: 90 kg

DRUGS (6)
  1. SODIUM CHLORIDE 0.9%  INJECTION USP [Suspect]
     Active Substance: SODIUM CHLORIDE
     Indication: ADVERSE EVENT
     Route: 010
  2. NOREPINEPHRINE [Suspect]
     Active Substance: NOREPINEPHRINE\NOREPINEPHRINE BITARTRATE
     Indication: PRODUCT USED FOR UNKNOWN INDICATION
     Route: 065
  3. SODIUM CHLORIDE 0.9%  INJECTION USP [Suspect]
     Active Substance: SODIUM CHLORIDE
     Indication: DEVICE PRIMING
     Route: 042
     Dates: start: 20140630
  4. PHOXILIUM [Suspect]
     Active Substance: CALCIUM CHLORIDE\MAGNESIUM CHLORIDE\POTASSIUM CHLORIDE\SODIUM BICARBONATE\SODIUM CHLORIDE\SODIUM PHOSPHATE, DIBASIC
     Indication: RENAL REPLACEMENT THERAPY
     Route: 010
     Dates: start: 20140630
  5. CITRATE [Suspect]
     Active Substance: CITRIC ACID MONOHYDRATE
     Indication: DEVICE PRIMING
     Route: 042
     Dates: start: 20140630
  6. VASOPRESSIN. [Suspect]
     Active Substance: VASOPRESSIN
     Indication: PRODUCT USED FOR UNKNOWN INDICATION
     Route: 065

REACTIONS (2)
  - Device failure [Recovered/Resolved]
  - Haemorrhage [Unknown]
